FAERS Safety Report 5160446-3 (Version None)
Quarter: 2006Q4

REPORT INFORMATION
  Report Type: 
  Country: None (occurrence: None)
  Receive Date: 20061121
  Receipt Date: 20061107
  Transmission Date: 20070319
  Serious: Yes (Hospitalization)
  Sender: FDA-Public Use
  Company Number: 2006-150179-NL

PATIENT
  Age: 40 Year
  Sex: Female
  Weight: 87.1 kg

DRUGS (5)
  1. NUVARING [Suspect]
     Indication: CONTRACEPTION
     Dosage: VAGINAL, 3 WEEKS IN, 1 WEEK OUT
     Route: 067
     Dates: start: 20051026, end: 20060622
  2. DIOVAN [Concomitant]
  3. PLAQUENIL [Concomitant]
  4. LIPITOR [Concomitant]
  5. ENBREL [Concomitant]

REACTIONS (3)
  - CEREBRAL INFARCTION [None]
  - CEREBROVASCULAR ACCIDENT [None]
  - MICROANGIOPATHY [None]
